FAERS Safety Report 13852163 (Version 7)
Quarter: 2018Q1

REPORT INFORMATION
  Report Type: Spontaneous
  Country: US (occurrence: US)
  Receive Date: 20170810
  Receipt Date: 20180319
  Transmission Date: 20180508
  Serious: No
  Sender: FDA-Public Use
  Company Number: US-PFIZER INC-2017342711

PATIENT
  Age: 92 Year
  Sex: Female

DRUGS (12)
  1. IBRANCE [Suspect]
     Active Substance: PALBOCICLIB
     Dosage: UNK, 1X/DAY
     Dates: start: 2017
  2. CLONIDINE. [Concomitant]
     Active Substance: CLONIDINE
     Indication: BLOOD PRESSURE ABNORMAL
     Dosage: 1 MG, 3X/DAY
  3. FISH OIL [Concomitant]
     Active Substance: FISH OIL
     Indication: CARDIOVASCULAR DISORDER
  4. COENZYME Q10 [Concomitant]
     Active Substance: UBIDECARENONE
     Indication: GENERAL PHYSICAL CONDITION
     Dosage: 1 DF, DAILY
  5. FISH OIL [Concomitant]
     Active Substance: FISH OIL
     Indication: HYPERTENSION
     Dosage: 1000 MG, UNK
  6. PRAVASTATIN. [Concomitant]
     Active Substance: PRAVASTATIN
     Indication: BLOOD CHOLESTEROL INCREASED
     Dosage: 40 MG, UNK
  7. IBRANCE [Suspect]
     Active Substance: PALBOCICLIB
     Indication: BREAST CANCER METASTATIC
     Dosage: 100 MG, CYCLIC [21 DAYS ON THE PRODUCT AND 7 DAYS OFF]
     Route: 048
     Dates: start: 20170623, end: 20170707
  8. CENTRUM [Concomitant]
     Active Substance: VITAMINS
     Indication: GENERAL PHYSICAL CONDITION
     Dosage: 1 DF, DAILY
  9. CALCIUM [Concomitant]
     Active Substance: CALCIUM
     Indication: MALNUTRITION
     Dosage: 2 DF, UNK (2 CAPLETS)
  10. BABY ASPIRIN [Concomitant]
     Active Substance: ASPIRIN
     Indication: GENERAL PHYSICAL CONDITION
     Dosage: 81 MG, UNK
  11. FUROSEMIDE. [Concomitant]
     Active Substance: FUROSEMIDE
     Dosage: 20 MG, UNK (SUNDAY, TUESDAY, THURSDAY, AND SATURDAY TAKES ONE IN THE MORNING AND ONE AT NIGHT)
  12. FISH OIL [Concomitant]
     Active Substance: FISH OIL
     Indication: GENERAL PHYSICAL CONDITION

REACTIONS (2)
  - Full blood count decreased [Unknown]
  - Drug dose omission [Unknown]

NARRATIVE: CASE EVENT DATE: 20170707
